FAERS Safety Report 14859232 (Version 1)
Quarter: 2018Q2

REPORT INFORMATION
  Report Type: Spontaneous
  Country: US (occurrence: US)
  Receive Date: 20180423
  Receipt Date: 20180423
  Transmission Date: 20180711
  Serious: Yes (Other)
  Sender: FDA-Public Use
  Company Number: None

PATIENT
  Age: 83 Year
  Sex: Female
  Weight: 62.55 kg

DRUGS (1)
  1. PROLIA [Suspect]
     Active Substance: DENOSUMAB
     Indication: OSTEOPOROSIS
     Dosage: ?          OTHER FREQUENCY:ONCE EVERY 6 MONTH;?
     Route: 030
     Dates: start: 20180108

REACTIONS (5)
  - Pain in extremity [None]
  - Hypoaesthesia [None]
  - Arthralgia [None]
  - Cystitis [None]
  - Walking aid user [None]

NARRATIVE: CASE EVENT DATE: 20180215
